FAERS Safety Report 26073850 (Version 1)
Quarter: 2025Q4

REPORT INFORMATION
  Report Type: Spontaneous
  Country: CN (occurrence: CN)
  Receive Date: 20251121
  Receipt Date: 20251121
  Transmission Date: 20260117
  Serious: Yes (Other)
  Sender: KEDRION
  Company Number: CN-KEDRION-010572

PATIENT
  Age: 94 Year
  Sex: Female

DRUGS (2)
  1. ALBUMIN HUMAN [Suspect]
     Active Substance: ALBUMIN HUMAN
     Indication: Hypoalbuminaemia
     Route: 042
     Dates: start: 20251105, end: 20251105
  2. 20% human albumin [Concomitant]
     Indication: Hypoalbuminaemia
     Route: 042
     Dates: start: 20251028, end: 20251104

REACTIONS (6)
  - Klebsiella infection [Recovering/Resolving]
  - Chills [Recovering/Resolving]
  - Pyrexia [Recovering/Resolving]
  - Cyanosis [Unknown]
  - Oxygen saturation decreased [Recovered/Resolved]
  - Hypertension [Unknown]

NARRATIVE: CASE EVENT DATE: 20251105
